FAERS Safety Report 12484847 (Version 1)
Quarter: 2016Q2

REPORT INFORMATION
  Report Type: Report from Study
  Country: MX (occurrence: MX)
  Receive Date: 20160621
  Receipt Date: 20160621
  Transmission Date: 20160815
  Serious: Yes (Other)
  Sender: FDA-Public Use
  Company Number: MX-BAYER-2016-115769

PATIENT
  Sex: Male

DRUGS (1)
  1. ACETYLSALICYLIC ACID LYSINATE [Suspect]
     Active Substance: ASPIRIN LYSINE

REACTIONS (1)
  - Arrhythmia [Unknown]
